FAERS Safety Report 16966732 (Version 2)
Quarter: 2019Q4

REPORT INFORMATION
  Report Type: Spontaneous
  Country: US (occurrence: US)
  Receive Date: 20191028
  Receipt Date: 20191105
  Transmission Date: 20200122
  Serious: No
  Sender: FDA-Public Use
  Company Number: US-SA-2019SA290207

PATIENT
  Age: 75 Year
  Sex: Male

DRUGS (1)
  1. PRALUENT [Suspect]
     Active Substance: ALIROCUMAB
     Dosage: 75 MG
     Dates: start: 201910

REACTIONS (3)
  - Product administered at inappropriate site [Unknown]
  - Device use error [Unknown]
  - Product dose omission [Unknown]
